FAERS Safety Report 16521745 (Version 3)
Quarter: 2019Q3

REPORT INFORMATION
  Report Type: Spontaneous
  Country: GB (occurrence: GB)
  Receive Date: 20190702
  Receipt Date: 20190717
  Transmission Date: 20191004
  Serious: Yes (Death)
  Sender: FDA-Public Use
  Company Number: GB-MYLANLABS-2019M1060806

PATIENT
  Age: 45 Year
  Sex: Female
  Weight: 124.9 kg

DRUGS (29)
  1. OLANZAPINE. [Suspect]
     Active Substance: OLANZAPINE
     Indication: PRODUCT USED FOR UNKNOWN INDICATION
     Dosage: 20 MILLIGRAM, QD
     Dates: start: 20100128, end: 20100216
  2. CANESTEN [Concomitant]
     Active Substance: CLOTRIMAZOLE
     Indication: CANDIDA INFECTION
     Dosage: 500 MILLIGRAM
     Route: 067
     Dates: start: 20100217, end: 20100217
  3. DIAZEPAM. [Concomitant]
     Active Substance: DIAZEPAM
     Dosage: 5 MILLIGRAM, QD
     Dates: start: 20100128, end: 20100219
  4. MIRTAZAPINE. [Concomitant]
     Active Substance: MIRTAZAPINE
     Dosage: 45 MILLIGRAM, QD
     Dates: start: 20100128, end: 20100219
  5. DIHYDROCODEINE [Concomitant]
     Active Substance: DIHYDROCODEINE
     Dosage: 30-60MG TID
     Dates: start: 20100128, end: 20100219
  6. METFORMIN [Concomitant]
     Active Substance: METFORMIN HYDROCHLORIDE
     Dosage: 850 MILLIGRAM, QD
     Dates: start: 20100128, end: 20100219
  7. BECLOMETASONE [Concomitant]
     Active Substance: BECLOMETHASONE DIPROPIONATE
     Dosage: 1 DOSAGE FORM, BID
  8. SALBUTAMOL [Concomitant]
     Active Substance: ALBUTEROL
     Dosage: 2 DOSAGE FORM, PRN
  9. GABAPENTIN. [Concomitant]
     Active Substance: GABAPENTIN
     Dosage: 900 MILLIGRAM, QD
     Dates: start: 20100128, end: 20100219
  10. GABAPENTIN. [Concomitant]
     Active Substance: GABAPENTIN
     Dosage: 300 MILLIGRAM, QD
     Dates: start: 20100128, end: 20100219
  11. MOVICOL [Concomitant]
     Active Substance: POLYETHYLENE GLYCOL 3350\POTASSIUM CHLORIDE\SODIUM BICARBONATE\SODIUM CHLORIDE
     Indication: CONSTIPATION
     Dosage: 4 DOSAGE FORM, QD
     Dates: start: 20100205, end: 20100219
  12. TEMAZEPAM. [Concomitant]
     Active Substance: TEMAZEPAM
     Dosage: 10 MILLIGRAM, QD (AT BEDTIME)
     Dates: start: 20100128, end: 20100219
  13. GLICLAZIDE [Concomitant]
     Active Substance: GLICLAZIDE
     Dosage: 160 MILLIGRAM, QD
     Dates: start: 20100128, end: 20100219
  14. DIAZEPAM. [Concomitant]
     Active Substance: DIAZEPAM
     Dosage: 20 MILLIGRAM, QD
     Dates: start: 20100128, end: 20100219
  15. GLICLAZIDE [Concomitant]
     Active Substance: GLICLAZIDE
     Dosage: 80 MILLIGRAM, QD
     Dates: start: 20100128, end: 20100219
  16. RAMIPRIL. [Concomitant]
     Active Substance: RAMIPRIL
     Dosage: 5 MILLIGRAM, QD
     Dates: start: 20100128, end: 20100219
  17. MIRTAZAPINE. [Concomitant]
     Active Substance: MIRTAZAPINE
     Dosage: 30 MILLIGRAM, QD (AT BEDTIME)
     Dates: start: 20100128, end: 20100219
  18. LACTULOSE. [Concomitant]
     Active Substance: LACTULOSE
     Indication: CONSTIPATION
     Dosage: 30 MILLILITER, QD
     Route: 048
     Dates: start: 20100204, end: 20100219
  19. OMEPRAZOLE. [Concomitant]
     Active Substance: OMEPRAZOLE
     Dosage: 20 MILLIGRAM, PRN
  20. ZAPONEX [Suspect]
     Active Substance: CLOZAPINE
     Indication: SCHIZOPHRENIA
     Dosage: 25MG + 100MG INCREASED TO 125MG MANE + 200MG NOCTE
     Route: 048
     Dates: start: 20100201, end: 20100219
  21. SENNA                              /00142201/ [Concomitant]
     Active Substance: SENNA LEAF
     Indication: CONSTIPATION
     Dosage: 1-2 TAB 1-2XDAILY STARTING 3-6/2/10
  22. TRIMETHOPRIM. [Concomitant]
     Active Substance: TRIMETHOPRIM
     Indication: URINARY TRACT INFECTION
     Dosage: 400 MILLIGRAM
     Route: 048
     Dates: start: 20100218, end: 20100218
  23. SIMVASTATIN. [Concomitant]
     Active Substance: SIMVASTATIN
     Dosage: 20 MILLIGRAM, QD
     Dates: start: 20100128, end: 20100219
  24. ZOPICLONE [Concomitant]
     Active Substance: ZOPICLONE
     Dosage: 7.5 MILLIGRAM, QD
  25. PARACETAMOL [Concomitant]
     Active Substance: ACETAMINOPHEN
     Indication: URINARY TRACT INFECTION
     Dosage: UNK
  26. OLANZAPINE. [Suspect]
     Active Substance: OLANZAPINE
     Dosage: 10 MILLIGRAM
     Route: 048
     Dates: start: 20100217, end: 20100219
  27. PHOSPHATE                          /01684601/ [Concomitant]
     Indication: CONSTIPATION
     Dosage: DAILY STARTING 5-8/2/10
     Route: 054
  28. METFORMIN [Concomitant]
     Active Substance: METFORMIN HYDROCHLORIDE
     Dosage: 2550 MILLIGRAM, QD
     Dates: start: 20100128, end: 20100219
  29. LORAZEPAM. [Concomitant]
     Active Substance: LORAZEPAM
     Dosage: 0.5-1MG, MAX 4MG/24HR PRN

REACTIONS (18)
  - Toxicity to various agents [Fatal]
  - Postmortem blood drug level increased [Fatal]
  - Vulvovaginal candidiasis [Unknown]
  - Tachycardia [Not Recovered/Not Resolved]
  - Steatohepatitis [Fatal]
  - Arteriosclerosis coronary artery [Not Recovered/Not Resolved]
  - Hepatic cirrhosis [Fatal]
  - Joint swelling [Unknown]
  - Urinary tract infection [Unknown]
  - Malaise [Fatal]
  - Cardiac arrest [Fatal]
  - Aortic arteriosclerosis [Not Recovered/Not Resolved]
  - Hypertension [Unknown]
  - Constipation [Unknown]
  - Salivary hypersecretion [Unknown]
  - Incontinence [Unknown]
  - Hepatic failure [Fatal]
  - Myocardial infarction [Fatal]

NARRATIVE: CASE EVENT DATE: 201002
